FAERS Safety Report 5862441-5 (Version None)
Quarter: 2008Q3

REPORT INFORMATION
  Report Type: 
  Country: None (occurrence: None)
  Receive Date: 20080826
  Receipt Date: 20080807
  Transmission Date: 20090109
  Serious: Yes (Other)
  Sender: FDA-Public Use
  Company Number: 6044999

PATIENT
  Age: 45 Year
  Sex: Male

DRUGS (1)
  1. BISOPROLOL FUMARATE [Suspect]
     Indication: CHOLECYSTITIS
     Dosage: 25 MG (25 MG, 1 IN 1 D) ORAL
     Route: 048
     Dates: end: 20080701

REACTIONS (2)
  - CHOLECYSTITIS [None]
  - HEPATIC FUNCTION ABNORMAL [None]
